FAERS Safety Report 8952925 (Version 2)
Quarter: 2013Q1

REPORT INFORMATION
  Report Type: Report from Study
  Country: US (occurrence: US)
  Receive Date: 20121203
  Receipt Date: 20130129
  Transmission Date: 20140127
  Serious: Yes (Hospitalization, Other)
  Sender: FDA-Public Use
  Company Number: US-AMGEN-USACT2012076124

PATIENT
  Age: 54 Year
  Sex: Female
  Weight: 61.6 kg

DRUGS (15)
  1. PANITUMUMAB [Suspect]
     Indication: NON-SMALL CELL LUNG CANCER
     Dosage: 150 MG, QWK
     Route: 042
     Dates: start: 20121023
  2. CARBOPLATIN [Concomitant]
     Indication: NON-SMALL CELL LUNG CANCER
     Dosage: 258 MG, UNK
     Route: 042
     Dates: start: 20121023
  3. VIBRAMYCIN [Concomitant]
     Indication: INFECTION PROPHYLAXIS
     Dosage: 100 MG, BID
     Route: 048
     Dates: start: 20121102
  4. HYDROCORTISONE [Concomitant]
     Indication: ACNE
     Dosage: UNK UNK, QHS
     Route: 061
     Dates: start: 20121022
  5. LIDOCAINE VISCOUS [Concomitant]
     Dosage: UNK
     Dates: start: 20121106
  6. DIPHENHYDRAMINE [Concomitant]
     Dosage: UNK
  7. MYLANTA [Concomitant]
     Dosage: UNK
     Dates: start: 20121106
  8. ZOFRAN [Concomitant]
     Dosage: UNK
  9. COMPAZINE [Concomitant]
     Dosage: 10 MG, UNK
     Route: 048
     Dates: start: 20121022
  10. SODIUM CHLORIDE [Concomitant]
     Dosage: UNK
     Route: 042
     Dates: start: 20121121
  11. HEPARIN FLUSH [Concomitant]
  12. DEXAMETHASONE [Concomitant]
     Dosage: 20 MG, UNK
  13. FAMOTIDINE [Concomitant]
     Dosage: 20 MG, UNK
  14. PRILOSEC [Concomitant]
     Dosage: 20 MG, QD
     Route: 048
     Dates: start: 20121029
  15. CETAPHIL [Concomitant]
     Indication: ACNE
     Dosage: UNK UNK, QD
     Route: 061

REACTIONS (8)
  - Lymphocyte count decreased [Not Recovered/Not Resolved]
  - Sinus tachycardia [Recovered/Resolved]
  - Anaemia [Recovered/Resolved]
  - Diarrhoea [Recovered/Resolved]
  - Urinary tract infection [Recovered/Resolved]
  - Hypocalcaemia [Recovered/Resolved]
  - Hyperglycaemia [Recovered/Resolved]
  - Dehydration [Recovered/Resolved]
